FAERS Safety Report 8890782 (Version 1)
Quarter: 2012Q4

REPORT INFORMATION
  Report Type: 
  Country: CH (occurrence: CH)
  Receive Date: 20121107
  Receipt Date: 20121107
  Transmission Date: 20130627
  Serious: Yes (Hospitalization)
  Sender: FDA-Public Use
  Company Number: CH-ROCHE-1149726

PATIENT
  Age: 41 Year
  Sex: Male

DRUGS (3)
  1. MABTHERA [Suspect]
     Indication: IDIOPATHIC THROMBOCYTOPENIC PURPURA
     Route: 041
     Dates: start: 20120518, end: 20120525
  2. TACROLIMUS [Concomitant]
     Route: 065
     Dates: start: 2008, end: 20120529
  3. NPLATE [Concomitant]
     Indication: IDIOPATHIC THROMBOCYTOPENIC PURPURA
     Route: 040
     Dates: start: 20120518, end: 20120525

REACTIONS (9)
  - Muscular weakness [Recovered/Resolved]
  - Dysphonia [Recovered/Resolved]
  - Torticollis [Recovered/Resolved]
  - Pyrexia [Recovered/Resolved]
  - Arthralgia [Recovered/Resolved]
  - Myalgia [Recovered/Resolved]
  - Thrombocytopenia [Recovering/Resolving]
  - Hypotension [Recovered/Resolved]
  - Tachycardia [Recovered/Resolved]
